FAERS Safety Report 7234362-7 (Version None)
Quarter: 2011Q1

REPORT INFORMATION
  Report Type: 
  Country: None (occurrence: None)
  Receive Date: 20110119
  Receipt Date: 20101130
  Transmission Date: 20110831
  Serious: Yes (Hospitalization)
  Sender: FDA-Public Use
  Company Number: US-BAYER-201038186NA

PATIENT
  Sex: Female
  Weight: 72.6 kg

DRUGS (5)
  1. YAZ [Suspect]
     Indication: PRODUCT USED FOR UNKNOWN INDICATION
     Dosage: UNK
     Dates: start: 20060101, end: 20061128
  2. GEMFIBROZIL [Concomitant]
     Dosage: 60 MG, BID
     Route: 048
     Dates: start: 20061128
  3. YASMIN [Suspect]
     Indication: ACNE
  4. TYLENOL W/ CODEINE NO. 3 [Concomitant]
     Indication: PAIN
  5. OCELLA [Suspect]
     Indication: ACNE

REACTIONS (2)
  - PULMONARY EMBOLISM [None]
  - CHEST PAIN [None]
